FAERS Safety Report 5190951-5 (Version None)
Quarter: 2006Q4

REPORT INFORMATION
  Report Type: 
  Country: None (occurrence: None)
  Receive Date: 20061222
  Receipt Date: 20061207
  Transmission Date: 20070319
  Serious: Yes (Disabling)
  Sender: FDA-Public Use
  Company Number: CA-BOEHRINGER INGELHEIM PHARMACEUTICALS, INC.-2006-CN-00777CN

PATIENT
  Sex: Male

DRUGS (9)
  1. FLOMAX [Suspect]
     Indication: BENIGN PROSTATIC HYPERPLASIA
     Route: 048
     Dates: start: 20060919, end: 20061204
  2. NEXIUM [Concomitant]
  3. CRESTOR [Concomitant]
  4. XATRAL [Concomitant]
  5. AVALIDE [Concomitant]
     Dosage: 300 + 12.5MG
  6. NOVASEN [Concomitant]
  7. METOPROLOL SUCCINATE [Concomitant]
  8. EZETROL [Concomitant]
  9. GEN NITRO SL [Concomitant]

REACTIONS (2)
  - DIZZINESS [None]
  - DRUG INEFFECTIVE [None]
